FAERS Safety Report 16842668 (Version 5)
Quarter: 2019Q4

REPORT INFORMATION
  Report Type: Spontaneous
  Country: BR (occurrence: BR)
  Receive Date: 20190924
  Receipt Date: 20191031
  Transmission Date: 20200122
  Serious: Yes (Other)
  Sender: FDA-Public Use
  Company Number: BR-009507513-1909BRA008408

PATIENT
  Age: 75 Year
  Sex: Female
  Weight: 55 kg

DRUGS (6)
  1. JANUVIA [Interacting]
     Active Substance: SITAGLIPTIN PHOSPHATE
     Dosage: 50 MILLIGRAM, 1 TABLET QD
     Route: 048
     Dates: start: 20190915, end: 20190917
  2. JANUVIA [Interacting]
     Active Substance: SITAGLIPTIN PHOSPHATE
     Dosage: 1 TABLET, QD
     Route: 048
     Dates: start: 201909
  3. AZITHROMYCIN ANHYDROUS. [Interacting]
     Active Substance: AZITHROMYCIN ANHYDROUS
     Indication: PNEUMONIA
     Dosage: 1 TABLET PER DAY
     Route: 048
     Dates: start: 20190910, end: 20190914
  4. JANUVIA [Interacting]
     Active Substance: SITAGLIPTIN PHOSPHATE
     Dosage: TWO TABLETS OF JANUVIA 50MG, ONE IN THE MORNING AND ONE BEFORE BED TIME,
     Route: 048
     Dates: start: 20190918, end: 20190918
  5. JANUVIA [Suspect]
     Active Substance: SITAGLIPTIN PHOSPHATE
     Indication: TYPE 2 DIABETES MELLITUS
     Dosage: 50 MILLIGRAM, 1 TABLET QD
     Route: 048
  6. LEVOXIN [Interacting]
     Active Substance: LEVOFLOXACIN
     Indication: PNEUMONIA
     Dosage: 1 TABLET PER DAY
     Route: 048
     Dates: start: 20190910, end: 20190914

REACTIONS (5)
  - Drug interaction [Unknown]
  - Pleural effusion [Recovered/Resolved]
  - Blood glucose increased [Recovered/Resolved]
  - Incorrect dose administered [Unknown]
  - Pneumonia [Recovered/Resolved]

NARRATIVE: CASE EVENT DATE: 201909
